FAERS Safety Report 7969010-1 (Version None)
Quarter: 2011Q4

REPORT INFORMATION
  Report Type: 
  Country: None (occurrence: None)
  Receive Date: 20111208
  Receipt Date: 20111202
  Transmission Date: 20120403
  Serious: Yes (Hospitalization, Other)
  Sender: FDA-Public Use
  Company Number: AUR-APL-2011-05508

PATIENT
  Age: 57 Year
  Sex: Female

DRUGS (7)
  1. FENTANYL [Suspect]
     Indication: INDUCTION AND MAINTENANCE OF ANAESTHESIA
     Dosage: (1 UG/KG), INTRAVENOUS
     Route: 042
  2. MIDAZOLAM [Concomitant]
  3. PANCURONTIUM [Concomitant]
  4. FLUOXETINE [Suspect]
     Indication: PRODUCT USED FOR UNKNOWN INDICATION
     Dosage: (60 MG, 1 D),
  5. THIOPENTAL SODIUM [Concomitant]
  6. METOPROLOL TARTRATE [Concomitant]
  7. ROCURONIUM BROMIDE [Concomitant]

REACTIONS (13)
  - CORONARY ARTERY DISEASE [None]
  - MYOCLONUS [None]
  - VOMITING [None]
  - HEART RATE INCREASED [None]
  - HEADACHE [None]
  - NAUSEA [None]
  - BLOOD PRESSURE INCREASED [None]
  - CORONARY ARTERY OCCLUSION [None]
  - SEROTONIN SYNDROME [None]
  - HYPERHIDROSIS [None]
  - TACHYPNOEA [None]
  - AGITATION [None]
  - CHEST PAIN [None]
